FAERS Safety Report 5288847-3 (Version None)
Quarter: 2007Q2

REPORT INFORMATION
  Report Type: 
  Country: None (occurrence: None)
  Receive Date: 20070405
  Receipt Date: 20070329
  Transmission Date: 20071010
  Serious: Yes (Disabling, Other)
  Sender: FDA-Public Use
  Company Number: BE-MERCK-0610BEL00044

PATIENT
  Age: 55 Year
  Sex: Male
  Weight: 67 kg

DRUGS (3)
  1. ZETIA [Suspect]
     Indication: HYPERCHOLESTEROLAEMIA
     Route: 048
     Dates: start: 20060420, end: 20061026
  2. BISOPROLOL FUMARATE [Concomitant]
     Route: 048
     Dates: start: 20020101
  3. TICLOPIDINE HYDROCHLORIDE [Concomitant]
     Route: 048
     Dates: start: 20020101

REACTIONS (9)
  - INFLAMMATION [None]
  - MUSCLE ATROPHY [None]
  - MUSCLE SPASMS [None]
  - MYALGIA [None]
  - PAIN IN EXTREMITY [None]
  - RADICULITIS [None]
  - SYSTEMIC LUPUS ERYTHEMATOSUS [None]
  - TENDONITIS [None]
  - WEIGHT DECREASED [None]
